FAERS Safety Report 16757370 (Version 1)
Quarter: 2019Q3

REPORT INFORMATION
  Report Type: Spontaneous
  Country: US (occurrence: US)
  Receive Date: 20190829
  Receipt Date: 20190829
  Transmission Date: 20191005
  Serious: Yes (Hospitalization)
  Sender: FDA-Public Use
  Company Number: US-BIOGEN-2019BI00737436

PATIENT
  Sex: Female

DRUGS (3)
  1. AVONEX [Suspect]
     Active Substance: INTERFERON BETA-1A
     Route: 042
     Dates: start: 20190614
  2. AVONEX [Suspect]
     Active Substance: INTERFERON BETA-1A
     Indication: MULTIPLE SCLEROSIS
     Route: 065
     Dates: start: 1994, end: 1994
  3. AVONEX [Suspect]
     Active Substance: INTERFERON BETA-1A
     Route: 065
     Dates: start: 19940101

REACTIONS (8)
  - Gait disturbance [Not Recovered/Not Resolved]
  - Musculoskeletal disorder [Unknown]
  - Malaise [Unknown]
  - Gait inability [Unknown]
  - Influenza like illness [Unknown]
  - Fall [Recovered/Resolved]
  - Nephrolithiasis [Unknown]
  - Limb injury [Unknown]
